FAERS Safety Report 9607384 (Version 1)
Quarter: 2013Q4

REPORT INFORMATION
  Report Type: Spontaneous
  Country: US (occurrence: None)
  Receive Date: 20131007
  Receipt Date: 20131007
  Transmission Date: 20140711
  Serious: Yes (Other)
  Sender: FDA-Public Use
  Company Number: 2012-001684

PATIENT
  Age: 70 Year
  Sex: Female
  Weight: 54.4 kg

DRUGS (6)
  1. ACTONEL [Suspect]
     Route: 048
     Dates: start: 200407, end: 2008
  2. FOSAMAX [Suspect]
     Route: 048
     Dates: start: 200111, end: 2003
  3. ALENDRONATE (ALENDRONATE SODIUM) [Suspect]
     Route: 048
     Dates: start: 2009
  4. SINGULAIR [Concomitant]
  5. SPIRIVA(TIOTROPIUM BROMIDE) [Concomitant]
  6. BROVANA(ARFORMOTEROL TARTRATE) [Concomitant]

REACTIONS (7)
  - Stress fracture [None]
  - Fall [None]
  - Pain in extremity [None]
  - Bone disorder [None]
  - Femur fracture [None]
  - Osteochondroma [None]
  - Osteoarthritis [None]
